FAERS Safety Report 19209110 (Version 3)
Quarter: 2021Q2

REPORT INFORMATION
  Report Type: Spontaneous
  Country: PF (occurrence: PF)
  Receive Date: 20210504
  Receipt Date: 20210525
  Transmission Date: 20210717
  Serious: Yes (Other)
  Sender: FDA-Public Use
  Company Number: PF-REGENERON PHARMACEUTICALS, INC.-2021-47509

PATIENT

DRUGS (1)
  1. EYLEA [Suspect]
     Active Substance: AFLIBERCEPT
     Indication: AGE-RELATED MACULAR DEGENERATION
     Dosage: 2 MG, 4TH INTRAVITREAL INJECTION RECEIVED, LEFT EYE

REACTIONS (3)
  - Intraocular pressure increased [Unknown]
  - Wrong technique in device usage process [Unknown]
  - Blindness transient [Recovered/Resolved]
